FAERS Safety Report 8528778-6 (Version None)
Quarter: 2012Q3

REPORT INFORMATION
  Report Type: 
  Country: None (occurrence: None)
  Receive Date: 20120723
  Receipt Date: 20120717
  Transmission Date: 20120928
  Serious: Yes (Other)
  Sender: FDA-Public Use
  Company Number: AT-009507513-1207AUT006803

PATIENT

DRUGS (8)
  1. NORVIR [Concomitant]
     Indication: IMMUNODEFICIENCY
     Dosage: 100 MG, UNK
     Dates: start: 20100626
  2. ISENTRESS [Suspect]
     Indication: IMMUNODEFICIENCY
     Dosage: 400 MG, BID
     Route: 048
     Dates: start: 20110926
  3. EMTRIVA [Concomitant]
     Indication: IMMUNODEFICIENCY
     Dosage: 200 MG, UNK
     Dates: start: 20110926
  4. OMEPRAZOLE [Concomitant]
     Indication: PROPHYLAXIS
     Dosage: 20 MG, UNK
     Dates: start: 20110512
  5. DICLOFENAC SODIUM [Concomitant]
     Indication: PAIN
     Dosage: 100 MG, UNK
     Dates: start: 20110512
  6. LESCOL [Concomitant]
     Indication: HYPERCHOLESTEROLAEMIA
     Dosage: 80 MG, UNK
     Dates: start: 20110515
  7. ESCITALOPRAM [Concomitant]
     Indication: DEPRESSION
     Dosage: 10 MG, UNK
     Dates: start: 20100425
  8. PREZISTA [Concomitant]
     Indication: IMMUNODEFICIENCY
     Dosage: 800 MG, UNK
     Dates: start: 20100626

REACTIONS (2)
  - DEPRESSION [None]
  - LOSS OF CONSCIOUSNESS [None]
